FAERS Safety Report 18937582 (Version 2)
Quarter: 2023Q2

REPORT INFORMATION
  Report Type: Report from Study
  Country: CA (occurrence: None)
  Receive Date: 20210225
  Receipt Date: 20230619
  Transmission Date: 20230721
  Serious: Yes (Other)
  Sender: FDA-Public Use
  Company Number: CA-PFIZER INC-2021176421

PATIENT
  Sex: Male

DRUGS (7)
  1. METHOTREXATE [Suspect]
     Active Substance: METHOTREXATE
     Indication: Product used for unknown indication
  2. CYCLOSPORINE [Suspect]
     Active Substance: CYCLOSPORINE
     Indication: Product used for unknown indication
  3. COSENTYX [Suspect]
     Active Substance: SECUKINUMAB
     Indication: Psoriasis
  4. HUMIRA [Concomitant]
     Active Substance: ADALIMUMAB
  5. NAPROXEN [Concomitant]
     Active Substance: NAPROXEN
  6. SULFASALAZINE [Concomitant]
     Active Substance: SULFASALAZINE
  7. DICLOFENAC DIETHYLAMINE [Concomitant]
     Active Substance: DICLOFENAC DIETHYLAMINE

REACTIONS (10)
  - Drug ineffective [Unknown]
  - Therapeutic product effect incomplete [Unknown]
  - Therapy non-responder [Unknown]
  - Contraindicated product administered [Unknown]
  - Product distribution issue [Unknown]
  - Congenital cystic kidney disease [Unknown]
  - Drug intolerance [Unknown]
  - Nasopharyngitis [Unknown]
  - Arthritis [Unknown]
  - Psoriasis [Unknown]
